FAERS Safety Report 20349547 (Version 1)
Quarter: 2022Q1

REPORT INFORMATION
  Report Type: Spontaneous
  Country: KR (occurrence: KR)
  Receive Date: 20220119
  Receipt Date: 20220119
  Transmission Date: 20220424
  Serious: Yes (Other)
  Sender: FDA-Public Use
  Company Number: KR-ASTELLAS-2022US001862

PATIENT
  Age: 15 Year
  Sex: Male

DRUGS (2)
  1. MIRABEGRON [Suspect]
     Active Substance: MIRABEGRON
     Indication: Neurogenic bladder
     Route: 065
     Dates: start: 2020
  2. MIRABEGRON [Suspect]
     Active Substance: MIRABEGRON
     Route: 065
     Dates: start: 202104

REACTIONS (3)
  - Renal impairment [Unknown]
  - Off label use [Unknown]
  - Off label use [Unknown]

NARRATIVE: CASE EVENT DATE: 20200101
